FAERS Safety Report 23899312 (Version 1)
Quarter: 2024Q2

REPORT INFORMATION
  Report Type: Spontaneous
  Country: US (occurrence: US)
  Receive Date: 20240526
  Receipt Date: 20240526
  Transmission Date: 20240716
  Serious: Yes (Death, Hospitalization, Other)
  Sender: FDA-Public Use
  Company Number: US-UROGEN PHARMA LTD.-2024-UGN-000064

PATIENT

DRUGS (5)
  1. JELMYTO [Suspect]
     Active Substance: MITOMYCIN
     Indication: Transitional cell cancer of the renal pelvis and ureter
     Dosage: UNK, INSTILLATION
     Route: 065
  2. JELMYTO [Suspect]
     Active Substance: MITOMYCIN
     Dosage: UNK, INSTILLATION
     Route: 065
  3. JELMYTO [Suspect]
     Active Substance: MITOMYCIN
     Dosage: UNK, INSTILLATION
     Route: 065
  4. JELMYTO [Suspect]
     Active Substance: MITOMYCIN
     Dosage: UNK, INSTILLATION
     Route: 065
  5. JELMYTO [Suspect]
     Active Substance: MITOMYCIN
     Dosage: UNK, INSTILLATION
     Route: 065
     Dates: start: 20240506, end: 20240506

REACTIONS (9)
  - Death [Fatal]
  - Ventricular tachycardia [Not Recovered/Not Resolved]
  - Blood sodium decreased [Not Recovered/Not Resolved]
  - Leukopenia [Not Recovered/Not Resolved]
  - Neutropenia [Not Recovered/Not Resolved]
  - Diarrhoea [Not Recovered/Not Resolved]
  - Lethargy [Not Recovered/Not Resolved]
  - Nausea [Recovered/Resolved]
  - Vomiting [Recovered/Resolved]

NARRATIVE: CASE EVENT DATE: 20240101
